FAERS Safety Report 13310069 (Version 1)
Quarter: 2017Q1

REPORT INFORMATION
  Report Type: Spontaneous
  Country: US (occurrence: US)
  Receive Date: 20170309
  Receipt Date: 20170309
  Transmission Date: 20170428
  Serious: Yes (Other)
  Sender: FDA-Public Use
  Company Number: None

PATIENT
  Age: 69 Year
  Sex: Male
  Weight: 128 kg

DRUGS (1)
  1. IMBRUVICA [Suspect]
     Active Substance: IBRUTINIB
     Indication: CHRONIC LYMPHOCYTIC LEUKAEMIA

REACTIONS (6)
  - Toxicity to various agents [None]
  - Infection [None]
  - Stevens-Johnson syndrome [None]
  - Headache [None]
  - Mouth ulceration [None]
  - Penile ulceration [None]

NARRATIVE: CASE EVENT DATE: 20160919
